FAERS Safety Report 4748071-7 (Version None)
Quarter: 2005Q3

REPORT INFORMATION
  Report Type: 
  Country: None (occurrence: None)
  Receive Date: 20050818
  Receipt Date: 20050810
  Transmission Date: 20060218
  Serious: Yes (Other)
  Sender: FDA-Public Use
  Company Number: KR-GLAXOSMITHKLINE-B0390577A

PATIENT
  Age: 53 Year
  Sex: Female

DRUGS (2)
  1. TOPOTECAN [Suspect]
     Indication: OVARIAN CANCER
     Dosage: 1MGM2 PER DAY
     Route: 042
     Dates: start: 20000622, end: 20000626
  2. CISPLATIN [Suspect]
     Indication: OVARIAN CANCER

REACTIONS (2)
  - ABDOMINAL PAIN [None]
  - ASCITES [None]
